FAERS Safety Report 25108698 (Version 5)
Quarter: 2025Q3

REPORT INFORMATION
  Report Type: Spontaneous
  Country: EU (occurrence: EU)
  Receive Date: 20250322
  Receipt Date: 20250929
  Transmission Date: 20251020
  Serious: Yes (Hospitalization, Other)
  Sender: AUROBINDO
  Company Number: EU-MLMSERVICE-20250303-PI431081-00322-1

PATIENT
  Age: 35 Year
  Sex: Male

DRUGS (15)
  1. TRAMADOL [Suspect]
     Active Substance: TRAMADOL
     Indication: Product used for unknown indication
     Route: 065
  2. PREGABALIN [Suspect]
     Active Substance: PREGABALIN
     Indication: Product used for unknown indication
     Dosage: UNK, ONCE A DAY (1,200 AND 2,000 MG)
     Route: 065
  3. PREGABALIN [Suspect]
     Active Substance: PREGABALIN
     Dosage: 1500 MILLIGRAM, ONCE A DAY, (1,200 AND 2,000 MG)
     Route: 065
  4. PREGABALIN [Suspect]
     Active Substance: PREGABALIN
     Route: 065
  5. PREGABALIN [Suspect]
     Active Substance: PREGABALIN
     Route: 065
  6. GABAPENTIN [Suspect]
     Active Substance: GABAPENTIN
     Indication: Product used for unknown indication
     Dosage: 3000 MILLIGRAM, ONCE A DAY
     Route: 065
  7. GABAPENTIN [Suspect]
     Active Substance: GABAPENTIN
     Indication: Product used for unknown indication
  8. GABAPENTIN [Suspect]
     Active Substance: GABAPENTIN
     Indication: Drug detoxification
  9. GABAPENTIN [Suspect]
     Active Substance: GABAPENTIN
     Indication: Product used for unknown indication
  10. GABAPENTIN [Suspect]
     Active Substance: GABAPENTIN
     Indication: Product used for unknown indication
  11. DIAZEPAM [Suspect]
     Active Substance: DIAZEPAM
     Indication: Product used for unknown indication
     Route: 065
  12. DIAZEPAM [Suspect]
     Active Substance: DIAZEPAM
     Indication: Drug detoxification
  13. PALIPERIDONE [Concomitant]
     Active Substance: PALIPERIDONE
     Indication: Schizophrenia
  14. ZUCLOPENTHIXOL [Concomitant]
     Active Substance: ZUCLOPENTHIXOL
     Indication: Hallucination
  15. ZUCLOPENTHIXOL [Concomitant]
     Active Substance: ZUCLOPENTHIXOL
     Indication: Confusional state

REACTIONS (14)
  - Drug withdrawal syndrome [Unknown]
  - Drug use disorder [Not Recovered/Not Resolved]
  - Hallucination [Unknown]
  - Confusional state [Unknown]
  - Toxicity to various agents [Unknown]
  - Drug abuse [Unknown]
  - Drug dependence [Recovering/Resolving]
  - Occupational problem environmental [Unknown]
  - Drug ineffective [Unknown]
  - Intentional overdose [Unknown]
  - Intentional product use issue [Unknown]
  - Drug ineffective for unapproved indication [Unknown]
  - Off label use [Unknown]
  - Intentional product misuse [Unknown]
